FAERS Safety Report 5092728-8 (Version None)
Quarter: 2006Q3

REPORT INFORMATION
  Report Type: 
  Country: None (occurrence: None)
  Receive Date: 20060727
  Receipt Date: 20060601
  Transmission Date: 20061208
  Serious: Yes (Other)
  Sender: FDA-Public Use
  Company Number: 2006072498

PATIENT
  Age: 72 Year
  Sex: Male
  Weight: 76.2043 kg

DRUGS (12)
  1. LYRICA [Suspect]
     Indication: NEUROPATHY
     Dosage: 150 MG (75 MG, 2 IN 1 D), ORAL
     Route: 048
     Dates: start: 20060501
  2. DILTIAZEM [Concomitant]
  3. LISINOPRIL [Concomitant]
  4. HYDROCHLOROTHIAZIDE [Concomitant]
  5. EFFEXOR XR [Concomitant]
  6. NEXIUM [Concomitant]
  7. ALLOPURINOL [Concomitant]
  8. POTASSIUM CHLORIDE [Concomitant]
  9. LIPITOR [Concomitant]
  10. AMBIEN [Concomitant]
  11. TAMSULOSIN HYDROCHLORIDE (TAMSULOSIN HYDROCHLORIDE) [Concomitant]
  12. VITAMINS (VITAMINS) [Concomitant]

REACTIONS (1)
  - DYSKINESIA [None]
